FAERS Safety Report 5908559-X (Version None)
Quarter: 2008Q4

REPORT INFORMATION
  Report Type: 
  Country: None (occurrence: None)
  Receive Date: 20081006
  Receipt Date: 20080926
  Transmission Date: 20090506
  Serious: Yes (Hospitalization, Other)
  Sender: FDA-Public Use
  Company Number: US-AMGEN-QUU309978

PATIENT
  Sex: Female

DRUGS (2)
  1. ENBREL [Suspect]
     Indication: RHEUMATOID ARTHRITIS
     Route: 058
     Dates: start: 20030901
  2. IMURAN [Concomitant]

REACTIONS (5)
  - RASH [None]
  - RETCHING [None]
  - SPINAL COLUMN STENOSIS [None]
  - TREMOR [None]
  - URINARY TRACT INFECTION [None]
